FAERS Safety Report 10563223 (Version 1)
Quarter: 2014Q4

REPORT INFORMATION
  Report Type: Spontaneous
  Country: US (occurrence: None)
  Receive Date: 20141103
  Receipt Date: 20141103
  Transmission Date: 20150529
  Serious: No
  Sender: FDA-Public Use
  Company Number: None

PATIENT
  Age: 68 Year
  Sex: Female
  Weight: 54.89 kg

DRUGS (1)
  1. GENTAK [Suspect]
     Active Substance: GENTAMICIN SULFATE
     Indication: BLEPHARITIS
     Dosage: SMALL AMT ON Q-TIP ONCE DAILY BEDTIME APPLIED TO A SURFACE, USUALLY THE SKIN
     Route: 058
     Dates: start: 20141022, end: 20141023

REACTIONS (5)
  - Eyelids pruritus [None]
  - Application site pruritus [None]
  - Eye swelling [None]
  - Labyrinthitis [None]
  - Vertigo [None]

NARRATIVE: CASE EVENT DATE: 20141024
